FAERS Safety Report 14092987 (Version 1)
Quarter: 2017Q4

REPORT INFORMATION
  Report Type: Spontaneous
  Country: IT (occurrence: IT)
  Receive Date: 20171016
  Receipt Date: 20171016
  Transmission Date: 20180321
  Serious: Yes (Other)
  Sender: FDA-Public Use
  Company Number: IT-MYLANLABS-2017M1063202

PATIENT
  Sex: Female

DRUGS (1)
  1. FROBEN [Suspect]
     Active Substance: FLURBIPROFEN
     Indication: NEURALGIA
     Dosage: DAILY
     Route: 061

REACTIONS (2)
  - Drug abuse [Unknown]
  - Palpitations [Unknown]
